FAERS Safety Report 8025038-7 (Version None)
Quarter: 2012Q1

REPORT INFORMATION
  Report Type: 
  Country: None (occurrence: None)
  Receive Date: 20120105
  Receipt Date: 20111228
  Transmission Date: 20120608
  Serious: Yes (Hospitalization, Other)
  Sender: FDA-Public Use
  Company Number: US-MERCK-1107USA02912

PATIENT
  Age: 59 Year
  Sex: Female
  Weight: 61 kg

DRUGS (7)
  1. FOSAMAX [Suspect]
     Indication: OSTEOPOROSIS
     Route: 048
     Dates: start: 20080201, end: 20090401
  2. BUSPAR [Concomitant]
     Indication: DEPRESSION
     Route: 065
     Dates: start: 19970101
  3. HYDROCHLOROTHIAZIDE AND TRIAMTERENE [Concomitant]
     Indication: HYPERTENSION
     Route: 065
     Dates: start: 20000101, end: 20090101
  4. PREMPRO [Concomitant]
     Indication: HORMONE REPLACEMENT THERAPY
     Route: 065
     Dates: start: 19980101, end: 20100101
  5. ELAVIL [Concomitant]
     Indication: MYOFASCIAL PAIN SYNDROME
     Route: 048
     Dates: start: 19950101
  6. FOSAMAX [Suspect]
     Indication: OSTEOPENIA
     Route: 048
     Dates: start: 20020920, end: 20080219
  7. ZOCOR [Concomitant]
     Indication: HYPERCHOLESTEROLAEMIA
     Route: 048
     Dates: start: 19960101, end: 20090101

REACTIONS (11)
  - LUNG INFILTRATION [None]
  - HEADACHE [None]
  - TEMPOROMANDIBULAR JOINT SYNDROME [None]
  - ERYTHEMA [None]
  - OSTEONECROSIS OF JAW [None]
  - CARDIAC DISORDER [None]
  - DEPRESSION [None]
  - SWELLING [None]
  - ROTATOR CUFF SYNDROME [None]
  - TOOTH INFECTION [None]
  - ARTHROPATHY [None]
